FAERS Safety Report 7879269-7 (Version None)
Quarter: 2011Q4

REPORT INFORMATION
  Report Type: 
  Country: None (occurrence: None)
  Receive Date: 20111101
  Receipt Date: 20111021
  Transmission Date: 20120403
  Serious: Yes (Hospitalization)
  Sender: FDA-Public Use
  Company Number: US-BAYER-2011-055339

PATIENT
  Age: 15 Year
  Sex: Female

DRUGS (8)
  1. ZYRTEC [Concomitant]
     Indication: HYPERSENSITIVITY
  2. IVF [Concomitant]
     Indication: PANCREATITIS
     Route: 042
  3. CETIRIZINE HCL [Concomitant]
     Dosage: 10 MG, UNK
  4. EYE DROPS [Concomitant]
     Indication: HYPERSENSITIVITY
  5. FLUTICASONE PROPIONATE [Concomitant]
     Dosage: 50 MG, UNK
  6. NASONEX [Concomitant]
     Indication: HYPERSENSITIVITY
  7. PEPCID [Concomitant]
     Indication: GASTROOESOPHAGEAL REFLUX DISEASE
  8. YAZ [Suspect]
     Indication: ACNE
     Dosage: UNK
     Dates: start: 20070101

REACTIONS (4)
  - PAIN [None]
  - CHOLELITHIASIS [None]
  - PANCREATIC DISORDER [None]
  - PANCREATITIS [None]
